FAERS Safety Report 9458516 (Version 2)
Quarter: 2013Q3

REPORT INFORMATION
  Report Type: Spontaneous
  Country: CH (occurrence: CH)
  Receive Date: 20130814
  Receipt Date: 20130829
  Transmission Date: 20140515
  Serious: No
  Sender: FDA-Public Use
  Company Number: CH-US-EMD SERONO, INC.-7229566

PATIENT
  Age: 7 Year
  Sex: Female

DRUGS (3)
  1. REBIF [Suspect]
     Indication: ENCEPHALITIS
     Route: 058
     Dates: start: 201207
  2. REBIF [Suspect]
  3. REBIF [Suspect]

REACTIONS (1)
  - Off label use [Unknown]
